FAERS Safety Report 10222749 (Version 1)
Quarter: 2014Q2

REPORT INFORMATION
  Report Type: Spontaneous
  Country: BR (occurrence: BR)
  Receive Date: 20140606
  Receipt Date: 20140606
  Transmission Date: 20141212
  Serious: Yes (Hospitalization)
  Sender: FDA-Public Use
  Company Number: BR-ASTRAZENECA-2014SE38710

PATIENT
  Age: 55 Year
  Sex: Male
  Weight: 70 kg

DRUGS (8)
  1. OMEPRAZOLE [Suspect]
     Route: 048
     Dates: start: 201310
  2. BRILINTA [Suspect]
     Indication: MYOCARDIAL INFARCTION
     Route: 048
     Dates: start: 201310
  3. INSULIN [Concomitant]
     Indication: DIABETES MELLITUS
     Dosage: TWO TIMES A DAY
     Route: 058
     Dates: end: 201311
  4. INSULIN [Concomitant]
     Indication: DIABETES MELLITUS
     Dosage: DAILY
     Route: 058
     Dates: start: 201311
  5. ASA [Concomitant]
     Route: 048
     Dates: start: 201310
  6. CONCOR [Concomitant]
     Route: 048
     Dates: start: 201310
  7. SIMVASTATIN [Concomitant]
     Indication: BLOOD CHOLESTEROL INCREASED
     Route: 048
  8. PURAN T4 [Concomitant]
     Route: 048

REACTIONS (4)
  - Hypoglycaemia [Recovered/Resolved]
  - Convulsion [Recovered/Resolved]
  - Weight decreased [Recovered/Resolved]
  - Off label use [Not Recovered/Not Resolved]
